FAERS Safety Report 7777289-4 (Version None)
Quarter: 2011Q3

REPORT INFORMATION
  Report Type: 
  Country: None (occurrence: None)
  Receive Date: 20110926
  Receipt Date: 20110913
  Transmission Date: 20111222
  Serious: Yes (Hospitalization)
  Sender: FDA-Public Use
  Company Number: US-BAYER-2011-083891

PATIENT
  Age: 78 Year
  Sex: Female

DRUGS (11)
  1. GLIMEPIRIDE [Suspect]
     Indication: DIABETES MELLITUS
     Dosage: DAILY DOSE 4 MG
  2. ASPIRIN [Suspect]
     Dosage: DAILY DOSE 1 DF
     Dates: end: 20110604
  3. SAXAGLIPTIN OR PLACEBO [Suspect]
     Indication: TYPE 2 DIABETES MELLITUS
     Dosage: UNK
     Dates: start: 20110523
  4. PLAVIX [Suspect]
     Dosage: UNK
     Dates: end: 20110604
  5. PLATELETS [Concomitant]
  6. ANGIOTENSIN II ANTAGONISTS [Concomitant]
  7. ACARBOSE [Suspect]
     Indication: DIABETES MELLITUS
     Dosage: DAILY DOSE 300 MG
  8. DIURETICS [Concomitant]
  9. ANTIHYPERTENSIVES [Concomitant]
  10. HMG COA REDUCTASE INHIBITORS [Concomitant]
  11. PLATELETS [Concomitant]

REACTIONS (5)
  - NAUSEA [None]
  - HAEMATOCHEZIA [None]
  - HAEMOGLOBIN DECREASED [None]
  - GASTRITIS EROSIVE [None]
  - GASTROINTESTINAL HAEMORRHAGE [None]
